FAERS Safety Report 20610441 (Version 2)
Quarter: 2022Q1

REPORT INFORMATION
  Report Type: Spontaneous
  Country: US (occurrence: US)
  Receive Date: 20220318
  Receipt Date: 20220328
  Transmission Date: 20220423
  Serious: No
  Sender: FDA-Public Use
  Company Number: US-009507513-2203USA004389

PATIENT
  Age: 65 Year
  Sex: Female

DRUGS (2)
  1. MOLNUPIRAVIR [Suspect]
     Active Substance: MOLNUPIRAVIR
     Indication: COVID-19
     Dosage: 800 MG TWICE A DAY
     Route: 048
     Dates: start: 20220303, end: 20220308
  2. RITUXAN [Concomitant]
     Active Substance: RITUXIMAB

REACTIONS (1)
  - Flushing [Recovering/Resolving]

NARRATIVE: CASE EVENT DATE: 20220305
